FAERS Safety Report 13661070 (Version 2)
Quarter: 2017Q4

REPORT INFORMATION
  Report Type: Report from Study
  Country: CO (occurrence: CO)
  Receive Date: 20170616
  Receipt Date: 20171206
  Transmission Date: 20180320
  Serious: Yes (Death, Hospitalization, Other)
  Sender: FDA-Public Use
  Company Number: CO-REGENERON PHARMACEUTICALS, INC.-2017-17207

PATIENT

DRUGS (4)
  1. EYLEA [Suspect]
     Active Substance: AFLIBERCEPT
     Dosage: SECOND DOSE
     Dates: start: 20151126, end: 20151126
  2. EYLEA [Suspect]
     Active Substance: AFLIBERCEPT
     Indication: AGE-RELATED MACULAR DEGENERATION
     Dosage: FIRST DOSE
     Dates: start: 20150326, end: 20150326
  3. EYLEA [Suspect]
     Active Substance: AFLIBERCEPT
     Dosage: UNK
     Dates: start: 20170518, end: 20170518
  4. EYLEA [Suspect]
     Active Substance: AFLIBERCEPT
     Dosage: THIRD DOSE
     Dates: start: 20160802, end: 20160802

REACTIONS (3)
  - Inappropriate schedule of drug administration [Recovered/Resolved]
  - Blood potassium decreased [Fatal]
  - Vomiting [Fatal]

NARRATIVE: CASE EVENT DATE: 20150326
